FAERS Safety Report 24718118 (Version 1)
Quarter: 2024Q4

REPORT INFORMATION
  Report Type: Spontaneous
  Country: FR (occurrence: FR)
  Receive Date: 20241210
  Receipt Date: 20241210
  Transmission Date: 20250114
  Serious: Yes (Other)
  Sender: NOVARTIS
  Company Number: None

PATIENT
  Sex: Female
  Weight: 3.61 kg

DRUGS (8)
  1. TEGRETOL [Suspect]
     Active Substance: CARBAMAZEPINE
     Indication: Epilepsy
     Dosage: 800 MG, QD (MATERNAL EXPOSURE DURING PREGNANCY)
     Route: 064
     Dates: start: 2022, end: 20220909
  2. TEGRETOL [Suspect]
     Active Substance: CARBAMAZEPINE
     Indication: Foetal exposure during pregnancy
  3. CLOBAZAM [Suspect]
     Active Substance: CLOBAZAM
     Indication: Epilepsy
     Dosage: 15 MG, QD (MATERNAL EXPOSURE DURING PREGNANCY)
     Route: 064
     Dates: start: 2022, end: 20220909
  4. CLOBAZAM [Suspect]
     Active Substance: CLOBAZAM
     Indication: Foetal exposure during pregnancy
  5. KEPPRA [Suspect]
     Active Substance: LEVETIRACETAM
     Indication: Epilepsy
     Dosage: 3 G, QD (MATERNAL EXPOSURE DURING PREGNANCY)
     Route: 064
     Dates: start: 2022, end: 20220909
  6. KEPPRA [Suspect]
     Active Substance: LEVETIRACETAM
     Indication: Foetal exposure during pregnancy
  7. LAMICTAL [Suspect]
     Active Substance: LAMOTRIGINE
     Indication: Epilepsy
     Dosage: 450 MG, QD (MATERNAL EXPOSURE DURING PREGNANCY)
     Route: 064
     Dates: start: 2022, end: 20220909
  8. LAMICTAL [Suspect]
     Active Substance: LAMOTRIGINE
     Indication: Foetal exposure during pregnancy

REACTIONS (4)
  - Respiratory distress [Recovered/Resolved]
  - Tachycardia [Recovered/Resolved]
  - Hypotonia [Recovered/Resolved]
  - Maternal exposure during pregnancy [Recovered/Resolved]

NARRATIVE: CASE EVENT DATE: 20220101
